FAERS Safety Report 5174293-X (Version None)
Quarter: 2006Q4

REPORT INFORMATION
  Report Type: 
  Country: None (occurrence: None)
  Receive Date: 20061206
  Receipt Date: 20061127
  Transmission Date: 20070319
  Serious: Yes (Other)
  Sender: FDA-Public Use
  Company Number: 2006-309

PATIENT
  Age: 50 Year
  Sex: Female

DRUGS (1)
  1. AZITHROMYCIN [Suspect]
     Indication: TONSILLITIS
     Dosage: 500MG/DAY
     Dates: start: 20061030, end: 20061101

REACTIONS (3)
  - FEELING HOT [None]
  - SUFFOCATION FEELING [None]
  - URTICARIA [None]
